FAERS Safety Report 15007782 (Version 1)
Quarter: 2018Q2

REPORT INFORMATION
  Report Type: Spontaneous
  Country: GR (occurrence: GR)
  Receive Date: 20180613
  Receipt Date: 20180613
  Transmission Date: 20180711
  Serious: Yes (Life-Threatening)
  Sender: FDA-Public Use
  Company Number: GR-PFIZER INC-2018238018

PATIENT
  Age: 77 Year
  Sex: Female
  Weight: 70 kg

DRUGS (8)
  1. SANDIMMUN NEORAL [Concomitant]
     Active Substance: CYCLOSPORINE
     Dosage: 1 DF (50 MG), 1X/DAY
     Route: 048
     Dates: start: 20010201, end: 20010330
  2. DONAROT [Concomitant]
     Dosage: 1 DF, 1X/DAY
     Route: 048
     Dates: start: 1990, end: 2014
  3. SANDIMMUN NEORAL [Concomitant]
     Active Substance: CYCLOSPORINE
     Dosage: 1 DF (50 MG) 1X DAY (OCCASIONALLY FOR ABOUT A MONTH PER YEAR)
     Route: 048
     Dates: start: 2001
  4. METHOTREXATE SODIUM. [Suspect]
     Active Substance: METHOTREXATE SODIUM
     Indication: RHEUMATOID ARTHRITIS
     Dosage: 4 TABLETS OF 2.5 MG EACH SATURDAY
     Route: 048
     Dates: start: 1990, end: 2014
  5. VERBORIL /00055702/ [Concomitant]
     Dosage: 1 DF, UNK
     Route: 048
     Dates: start: 1990, end: 2014
  6. FILICINE [Concomitant]
     Indication: RHEUMATOID ARTHRITIS
     Dosage: 1 DF, 1X/DAY
     Route: 048
     Dates: start: 1990, end: 2014
  7. FOSAVANCE [Concomitant]
     Active Substance: ALENDRONATE SODIUM\CHOLECALCIFEROL
     Dosage: 1 DF, WEEKLY
     Route: 048
     Dates: start: 2000, end: 2014
  8. IDEOS [Concomitant]
     Active Substance: CALCIUM CARBONATE\CHOLECALCIFEROL
     Dosage: 1 DF, 1X/DAY
     Route: 048
     Dates: start: 2000, end: 2014

REACTIONS (4)
  - Metastases to lung [Unknown]
  - Renal cancer [Unknown]
  - Metastases to bone [Unknown]
  - Metastases to soft tissue [Unknown]
